FAERS Safety Report 8895997 (Version 1)
Quarter: 2012Q4

REPORT INFORMATION
  Report Type: 
  Country: GB (occurrence: GB)
  Receive Date: 20121108
  Receipt Date: 20121108
  Transmission Date: 20130627
  Serious: Yes (Disabling, Other)
  Sender: FDA-Public Use
  Company Number: PHFR2012GB003492

PATIENT
  Sex: Male

DRUGS (6)
  1. RASILEZ [Suspect]
     Indication: HYPERTENSION
     Dosage: 150 mg, QD
     Route: 048
     Dates: start: 20111111
  2. RASILEZ [Suspect]
     Dosage: 1 DF every other day
  3. OMEPRAZOLE [Concomitant]
     Route: 048
     Dates: start: 20100719
  4. VICTOZA [Concomitant]
  5. PARACETAMOL [Concomitant]
  6. ASPIRIN [Concomitant]

REACTIONS (11)
  - Blood pressure increased [Recovering/Resolving]
  - Arrhythmia [Unknown]
  - Gastrooesophageal reflux disease [Unknown]
  - Arthralgia [Unknown]
  - Groin pain [Unknown]
  - Dysuria [Unknown]
  - Head discomfort [Unknown]
  - Chest discomfort [Unknown]
  - Dry throat [Unknown]
  - Pain [Unknown]
  - Drug intolerance [Unknown]
